FAERS Safety Report 5744768-0 (Version None)
Quarter: 2008Q2

REPORT INFORMATION
  Report Type: 
  Country: None (occurrence: None)
  Receive Date: 20080520
  Receipt Date: 20080512
  Transmission Date: 20081010
  Serious: Yes (Other)
  Sender: FDA-Public Use
  Company Number: US-PFIZER INC-2008035144

PATIENT
  Sex: Male
  Weight: 127 kg

DRUGS (7)
  1. SUTENT [Suspect]
     Indication: METASTATIC RENAL CELL CARCINOMA
     Route: 048
     Dates: start: 20071025, end: 20080417
  2. PERCOCET [Concomitant]
     Route: 048
  3. LORAZEPAM [Concomitant]
     Route: 048
  4. LOVASTATIN [Concomitant]
     Route: 048
  5. LISINOPRIL AND HYDROCHLOROTHIAZIDE [Concomitant]
     Route: 048
  6. NOVOLOG [Concomitant]
     Route: 058
  7. LANTUS [Concomitant]
     Route: 058

REACTIONS (14)
  - ABDOMINAL PAIN [None]
  - BLOOD CREATININE INCREASED [None]
  - BLOOD UREA INCREASED [None]
  - COLON INJURY [None]
  - DIVERTICULITIS [None]
  - HAEMATOCRIT DECREASED [None]
  - HAEMOGLOBIN DECREASED [None]
  - INTESTINAL FUNCTIONAL DISORDER [None]
  - MEAN CELL VOLUME [None]
  - MYOCARDIAL INFARCTION [None]
  - PAIN [None]
  - RED CELL DISTRIBUTION WIDTH INCREASED [None]
  - RENAL FAILURE ACUTE [None]
  - RESPIRATORY FAILURE [None]
